FAERS Safety Report 10098414 (Version 3)
Quarter: 2014Q2

REPORT INFORMATION
  Report Type: Spontaneous
  Country: US (occurrence: US)
  Receive Date: 20140423
  Receipt Date: 20140506
  Transmission Date: 20141212
  Serious: No
  Sender: FDA-Public Use
  Company Number: US-PFIZER INC-2014111277

PATIENT
  Age: 73 Year
  Sex: Male

DRUGS (3)
  1. EFFEXOR XR [Suspect]
     Dosage: 150 MG, UNK
  2. EFFEXOR XR [Suspect]
     Dosage: 75 MG, UNK
  3. EFFEXOR XR [Suspect]
     Dosage: 37.5 MG, UNK

REACTIONS (5)
  - Dizziness [Not Recovered/Not Resolved]
  - Fall [Not Recovered/Not Resolved]
  - Nausea [Not Recovered/Not Resolved]
  - Vomiting [Unknown]
  - Withdrawal syndrome [Unknown]
